FAERS Safety Report 6062779-5 (Version None)
Quarter: 2009Q1

REPORT INFORMATION
  Report Type: 
  Country: None (occurrence: None)
  Receive Date: 20090203
  Receipt Date: 20090121
  Transmission Date: 20090719
  Serious: Yes (Death)
  Sender: FDA-Public Use
  Company Number: US-JNJFOC-20090106933

PATIENT
  Sex: Female
  Weight: 70.76 kg

DRUGS (6)
  1. DURAGESIC-100 [Suspect]
     Indication: DRUG USE FOR UNKNOWN INDICATION
     Route: 065
  2. DIPHENHYDRAMINE HCL [Concomitant]
     Route: 065
  3. OXYCODONE [Concomitant]
     Route: 065
  4. OPIATES [Concomitant]
     Route: 065
  5. ZOLOFT [Concomitant]
  6. ELAVIL [Concomitant]

REACTIONS (3)
  - ASTHMA [None]
  - PNEUMONIA [None]
  - PULMONARY FIBROSIS [None]
